FAERS Safety Report 6490731-4 (Version None)
Quarter: 2009Q4

REPORT INFORMATION
  Report Type: 
  Country: None (occurrence: None)
  Receive Date: 20091211
  Receipt Date: 20091202
  Transmission Date: 20100525
  Serious: Yes (Other)
  Sender: FDA-Public Use
  Company Number: D0065174A

PATIENT
  Age: 23 Year
  Sex: Female

DRUGS (1)
  1. SUMATRIPTAN-RATIOPHARM [Suspect]
     Route: 048

REACTIONS (1)
  - CEREBROVASCULAR ACCIDENT [None]
